FAERS Safety Report 9532911 (Version 1)
Quarter: 2013Q3

REPORT INFORMATION
  Report Type: Spontaneous
  Country: US (occurrence: US)
  Receive Date: 20130918
  Receipt Date: 20130918
  Transmission Date: 20140515
  Serious: No
  Sender: FDA-Public Use
  Company Number: US-PURDUE-USA-2011-0076814

PATIENT
  Sex: Male

DRUGS (3)
  1. BUTRANS [Suspect]
     Indication: PRODUCT USED FOR UNKNOWN INDICATION
     Dosage: 5 MCG, Q1H
     Route: 062
     Dates: start: 20111019
  2. PROVENTIL                          /00139501/ [Concomitant]
     Indication: ASTHMA
     Dosage: UNK
  3. ADVAIR [Concomitant]
     Indication: ASTHMA
     Dosage: UNK

REACTIONS (1)
  - Dyspnoea [Recovered/Resolved]
